FAERS Safety Report 9445397 (Version 1)
Quarter: 2013Q3

REPORT INFORMATION
  Report Type: Spontaneous
  Country: IT (occurrence: None)
  Receive Date: 20130802
  Receipt Date: 20130802
  Transmission Date: 20140515
  Serious: Yes (Other)
  Sender: FDA-Public Use
  Company Number: GER/ITL/13/0033566

PATIENT
  Age: 84 Year
  Sex: Female

DRUGS (1)
  1. QUETIAPINE (QUETIAPINE) [Suspect]
     Indication: SENILE DEMENTIA
     Dosage: 125 MG, 1 IN 1 TOTAL
     Dates: start: 20130710, end: 20130710

REACTIONS (3)
  - Hypersensitivity [None]
  - Swelling [None]
  - Loss of consciousness [None]
